FAERS Safety Report 12797829 (Version 1)
Quarter: 2016Q3

REPORT INFORMATION
  Report Type: Spontaneous
  Country: US (occurrence: US)
  Receive Date: 20160929
  Receipt Date: 20160929
  Transmission Date: 20161109
  Serious: Yes (Other)
  Sender: FDA-Public Use
  Company Number: None

PATIENT
  Age: 54 Year
  Sex: Female
  Weight: 83.25 kg

DRUGS (26)
  1. DEXILANT [Concomitant]
     Active Substance: DEXLANSOPRAZOLE
  2. MONTELUKAST [Concomitant]
     Active Substance: MONTELUKAST SODIUM
  3. DULCOLAX STOOL SOFTNER [Concomitant]
  4. LANTUS [Concomitant]
     Active Substance: INSULIN GLARGINE
  5. LEVOTHYROXINE. [Concomitant]
     Active Substance: LEVOTHYROXINE
  6. CALCITRIOL. [Concomitant]
     Active Substance: CALCITRIOL
  7. FISH OIL [Concomitant]
     Active Substance: FISH OIL
  8. VITAMIN D [Concomitant]
     Active Substance: CHOLECALCIFEROL
  9. ALLEGRA [Concomitant]
     Active Substance: FEXOFENADINE HYDROCHLORIDE
  10. PROPRANOLOL [Concomitant]
     Active Substance: PROPRANOLOL\PROPRANOLOL HYDROCHLORIDE
  11. TYNOL 3 [Concomitant]
  12. MIRALIX [Concomitant]
  13. FLAXSEED [Concomitant]
     Active Substance: FLAX SEED
  14. METFORMIN [Concomitant]
     Active Substance: METFORMIN HYDROCHLORIDE
  15. NOVOLOG [Concomitant]
     Active Substance: INSULIN ASPART
  16. METOCLOPRAMIDE. [Concomitant]
     Active Substance: METOCLOPRAMIDE
  17. HYOSCYAMINE ORAL DIS TA VIRTUS [Suspect]
     Active Substance: HYOSCYAMINE
     Indication: IRRITABLE BOWEL SYNDROME
     Dosage: ?          QUANTITY:75 TABLET(S);?
     Route: 060
     Dates: start: 20160427, end: 20160513
  18. TUMS [Concomitant]
     Active Substance: CALCIUM CARBONATE
  19. BIOTIN [Concomitant]
     Active Substance: BIOTIN
  20. ZOCOR [Concomitant]
     Active Substance: SIMVASTATIN
  21. FLUTICASONE [Concomitant]
     Active Substance: FLUTICASONE\FLUTICASONE PROPIONATE
  22. METHOCARBAMOL. [Concomitant]
     Active Substance: METHOCARBAMOL
  23. MAGNESIUM [Concomitant]
     Active Substance: MAGNESIUM
  24. LOSARTAN/HCTZ [Concomitant]
     Active Substance: HYDROCHLOROTHIAZIDE\LOSARTAN
  25. SUCRALFATE. [Concomitant]
     Active Substance: SUCRALFATE
  26. PHILLIPS COLON HEALTH [Concomitant]

REACTIONS (6)
  - Asthenia [None]
  - Mydriasis [None]
  - Vision blurred [None]
  - Dysarthria [None]
  - Fatigue [None]
  - Dry mouth [None]

NARRATIVE: CASE EVENT DATE: 20160513
